FAERS Safety Report 8050194-4 (Version None)
Quarter: 2011Q4

REPORT INFORMATION
  Report Type: 
  Country: None (occurrence: None)
  Receive Date: 20111212
  Receipt Date: 20110818
  Transmission Date: 20120403
  Serious: Yes (Other)
  Sender: FDA-Public Use
  Company Number: PHHY2010US87885

PATIENT
  Age: 40 Year
  Sex: Female
  Weight: 56.7 kg

DRUGS (5)
  1. ASPIRIN [Concomitant]
  2. EXTAVIA [Suspect]
     Indication: MULTIPLE SCLEROSIS
     Dosage: 0.25MG, QOD, SUBCUTANEOUS
     Route: 058
     Dates: start: 20101110
  3. TYSARBI (NATALIZUMAB) [Concomitant]
  4. SOLU-MEDROL [Concomitant]
  5. BIRTH CONTROL PILLS [Concomitant]

REACTIONS (11)
  - INJECTION SITE HAEMATOMA [None]
  - INJECTION SITE ERYTHEMA [None]
  - INJECTION SITE HAEMORRHAGE [None]
  - PARAESTHESIA [None]
  - MULTIPLE SCLEROSIS RELAPSE [None]
  - INJECTION SITE REACTION [None]
  - CONFUSIONAL STATE [None]
  - HYPOAESTHESIA [None]
  - CENTRAL NERVOUS SYSTEM LESION [None]
  - INJECTION SITE PRURITUS [None]
  - INJECTION SITE PAIN [None]
